FAERS Safety Report 7645607-3 (Version None)
Quarter: 2011Q3

REPORT INFORMATION
  Report Type: 
  Country: None (occurrence: None)
  Receive Date: 20110729
  Receipt Date: 20110720
  Transmission Date: 20111222
  Serious: Yes (Other)
  Sender: FDA-Public Use
  Company Number: JP-ASTRAZENECA-2011SE43271

PATIENT
  Age: 67 Year
  Sex: Female

DRUGS (3)
  1. GEFITINIB [Suspect]
     Route: 048
  2. GEFITINIB [Suspect]
     Indication: LUNG ADENOCARCINOMA
     Route: 048
  3. GEFITINIB [Suspect]
     Dosage: REPEATED DOSES
     Route: 048

REACTIONS (1)
  - ALANINE AMINOTRANSFERASE INCREASED [None]
